FAERS Safety Report 6141089-1 (Version None)
Quarter: 2009Q2

REPORT INFORMATION
  Report Type: 
  Country: None (occurrence: None)
  Receive Date: 20090401
  Receipt Date: 20090401
  Transmission Date: 20091009
  Serious: Yes (Life-Threatening, Disabling)
  Sender: FDA-Public Use
  Company Number: None

PATIENT
  Sex: Female
  Weight: 43.9989 kg

DRUGS (1)
  1. MACROBID [Suspect]
     Indication: URINARY TRACT INFECTION
     Dosage: 100 MG TWICE DAILY
     Dates: start: 20090316, end: 20090323

REACTIONS (9)
  - ASTHENIA [None]
  - ATRIAL FIBRILLATION [None]
  - BLOOD GLUCOSE DECREASED [None]
  - BLOOD PRESSURE INCREASED [None]
  - CONFUSIONAL STATE [None]
  - DIARRHOEA [None]
  - HALLUCINATION [None]
  - RASH [None]
  - SOMNOLENCE [None]
